FAERS Safety Report 23992171 (Version 1)
Quarter: 2024Q2

REPORT INFORMATION
  Report Type: Spontaneous
  Country: CN (occurrence: CN)
  Receive Date: 20240620
  Receipt Date: 20240620
  Transmission Date: 20240716
  Serious: Yes (Other)
  Sender: FDA-Public Use
  Company Number: CN-CHEPLA-2024007158

PATIENT
  Age: 73 Year
  Sex: Male
  Weight: 70.0 kg

DRUGS (6)
  1. XELODA [Suspect]
     Active Substance: CAPECITABINE
     Indication: Rectal cancer
     Dosage: BID/APPROVAL NO. GYZZ H20073023, BID, D1-14 Q3W
     Route: 065
     Dates: start: 20240321
  2. XELODA [Suspect]
     Active Substance: CAPECITABINE
     Dosage: BID/APPROVAL NO. GYZZ H20073023, BID, D1-14 Q3W
     Route: 065
     Dates: start: 20240411
  3. OXALIPLATIN [Suspect]
     Active Substance: OXALIPLATIN
     Indication: Rectal cancer
     Dosage: APPROVAL NO. H20171064/ROA : INTRAVENOUS DRIP
     Route: 065
     Dates: start: 20240321
  4. OXALIPLATIN [Suspect]
     Active Substance: OXALIPLATIN
     Dosage: APPROVAL NO. H20171064/ROA : INTRAVENOUS DRIP
     Route: 065
     Dates: start: 20240411
  5. BEVACIZUMAB [Suspect]
     Active Substance: BEVACIZUMAB
     Indication: Rectal cancer
     Dosage: 400MG IVGTT
     Route: 065
     Dates: start: 20240321
  6. BEVACIZUMAB [Suspect]
     Active Substance: BEVACIZUMAB
     Dosage: 400MG IVGTT
     Route: 065
     Dates: start: 20240411

REACTIONS (1)
  - Myelosuppression [Recovering/Resolving]

NARRATIVE: CASE EVENT DATE: 20240501
